FAERS Safety Report 16779565 (Version 1)
Quarter: 2019Q3

REPORT INFORMATION
  Report Type: Spontaneous
  Country: US (occurrence: US)
  Receive Date: 20190906
  Receipt Date: 20190906
  Transmission Date: 20191005
  Serious: Yes (Other)
  Sender: FDA-Public Use
  Company Number: US-AMGEN INC.-USASP2019141503

PATIENT
  Sex: Male

DRUGS (1)
  1. AIMOVIG [Suspect]
     Active Substance: ERENUMAB-AOOE
     Indication: MIGRAINE
     Dosage: UNK (HIGHEST DOSAGE)
     Route: 065
     Dates: start: 2018, end: 2018

REACTIONS (2)
  - Migraine [Not Recovered/Not Resolved]
  - Blindness cortical [Unknown]

NARRATIVE: CASE EVENT DATE: 2018
